FAERS Safety Report 7329367-1 (Version None)
Quarter: 2011Q1

REPORT INFORMATION
  Report Type: 
  Country: None (occurrence: None)
  Receive Date: 20110303
  Receipt Date: 20110223
  Transmission Date: 20110831
  Serious: Yes (Other)
  Sender: FDA-Public Use
  Company Number: CHPA2011US03227

PATIENT
  Age: 68 Year
  Sex: Female

DRUGS (12)
  1. SIMVASTATIN [Concomitant]
     Dosage: UNK , UNK
  2. CVS [Suspect]
     Indication: SMOKING CESSATION THERAPY
     Dosage: 21 MG, QD
     Route: 062
     Dates: start: 20110217
  3. LORCET-HD [Concomitant]
     Indication: PAIN
     Dosage: UNK , UNK
  4. VENLAFAXINE [Concomitant]
     Dosage: UNK , UNK
  5. DRUG THERAPY NOS [Concomitant]
  6. ALBUTEROL [Concomitant]
     Dosage: UNK , UNK
  7. LISINOPRIL [Concomitant]
     Indication: HYPERTENSION
     Dosage: UNK , UNK
  8. DRUG THERAPY NOS [Concomitant]
     Dosage: UNK , UNK
     Route: 047
  9. ZYMAR [Concomitant]
     Dosage: UNK , UNK
     Route: 047
  10. SPIRIVA [Concomitant]
     Dosage: UNK , UNK
  11. ADVAIR DISKUS 100/50 [Concomitant]
     Dosage: UNK , UNK
  12. XANAX [Concomitant]
     Dosage: UNK , UNK
     Route: 048

REACTIONS (3)
  - CATARACT OPERATION [None]
  - OVERDOSE [None]
  - TREATMENT NONCOMPLIANCE [None]
